FAERS Safety Report 6683022-X (Version None)
Quarter: 2010Q2

REPORT INFORMATION
  Report Type: 
  Country: None (occurrence: None)
  Receive Date: 20100415
  Receipt Date: 20100402
  Transmission Date: 20101027
  Serious: Yes (Hospitalization)
  Sender: FDA-Public Use
  Company Number: JP-BAYER-201011448BYL

PATIENT
  Age: 61 Year
  Sex: Male
  Weight: 64 kg

DRUGS (13)
  1. NEXAVAR [Suspect]
     Indication: RENAL CELL CARCINOMA
     Dosage: TOTAL DAILY DOSE: 400 MG  UNIT DOSE: 200 MG
     Route: 048
     Dates: start: 20100209, end: 20100316
  2. FLUVASTATIN [Concomitant]
     Indication: HYPERLIPIDAEMIA
     Dosage: TOTAL DAILY DOSE: 20 MG
     Route: 048
  3. ASPIRIN [Concomitant]
     Indication: ISCHAEMIC HEART DISEASE PROPHYLAXIS
     Dosage: TOTAL DAILY DOSE: 100 MG  UNIT DOSE: 100 MG
     Route: 048
     Dates: start: 19960101
  4. FERRUM [Concomitant]
     Indication: ANAEMIA
     Dosage: TOTAL DAILY DOSE: 100 MG
     Route: 048
     Dates: start: 20090407
  5. HUSTAZOL [Concomitant]
     Indication: COUGH
     Dosage: TOTAL DAILY DOSE: 30 MG
     Route: 048
     Dates: start: 20090508
  6. BORRAZA-G [Concomitant]
     Indication: HAEMORRHOIDS
     Route: 061
     Dates: start: 20090428
  7. HIRUDOID [Concomitant]
     Indication: PALMAR-PLANTAR ERYTHRODYSAESTHESIA SYNDROME
     Route: 061
     Dates: start: 20100209
  8. ALLORIN [Concomitant]
     Indication: GOUT
     Dosage: TOTAL DAILY DOSE: 200 MG
     Route: 048
     Dates: start: 20090101
  9. GASLON N [Concomitant]
     Indication: GASTRITIS PROPHYLAXIS
     Dosage: TOTAL DAILY DOSE: 4 MG
     Route: 048
     Dates: start: 20090407
  10. THYRADIN [Concomitant]
     Indication: HYPOTHYROIDISM
     Route: 048
  11. THYRADIN [Concomitant]
     Dosage: TOTAL DAILY DOSE: 75 ?G
     Route: 048
     Dates: start: 20100107
  12. CANDESARTAN CILEXETIL [Concomitant]
     Indication: HYPERTENSION
     Dosage: TOTAL DAILY DOSE: 8 MG
     Route: 048
     Dates: start: 20100223
  13. CANDESARTAN CILEXETIL [Concomitant]
     Route: 048

REACTIONS (2)
  - PNEUMOTHORAX [None]
  - TUBERCULOSIS [None]
